FAERS Safety Report 9819922 (Version 2)
Quarter: 2014Q1

REPORT INFORMATION
  Report Type: Spontaneous
  Country: US (occurrence: US)
  Receive Date: 20140116
  Receipt Date: 20140203
  Transmission Date: 20141002
  Serious: No
  Sender: FDA-Public Use
  Company Number: US-PFIZER INC-2014012669

PATIENT
  Age: 65 Year
  Sex: Male
  Weight: 91.61 kg

DRUGS (4)
  1. SUTENT [Suspect]
     Dosage: UNK
     Dates: start: 20131231
  2. RENVELA [Concomitant]
     Dosage: UNK
  3. SIMVASTATIN [Concomitant]
     Dosage: UNK
  4. M.V.I. [Concomitant]
     Dosage: UNK

REACTIONS (4)
  - Stomatitis [Unknown]
  - Oral pain [Unknown]
  - Fatigue [Unknown]
  - Dysphagia [Unknown]
